FAERS Safety Report 8434427-8 (Version None)
Quarter: 2012Q2

REPORT INFORMATION
  Report Type: 
  Country: None (occurrence: None)
  Receive Date: 20120614
  Receipt Date: 20120606
  Transmission Date: 20120825
  Serious: No
  Sender: FDA-Public Use
  Company Number: US-B.I. PHARMACEUTICALS,INC./RIDGEFIELD-2012-BP-13170BP

PATIENT
  Sex: Female

DRUGS (9)
  1. ALLOPURINOL [Concomitant]
     Indication: GOUT
     Dosage: 80 MG
     Route: 048
  2. PRADAXA [Suspect]
     Indication: ATRIAL FIBRILLATION
     Dosage: 300 MG
     Route: 048
     Dates: start: 20120101
  3. TRAMADOL HCL [Concomitant]
     Indication: PAIN
     Dosage: 150 MG
     Route: 048
  4. AMIODARONE HCL [Concomitant]
     Indication: ARRHYTHMIA
  5. AMIODARONE HCL [Concomitant]
     Indication: HEART RATE ABNORMAL
     Dosage: 200 MG
     Route: 048
     Dates: start: 20120101
  6. SYMVASTATIN [Concomitant]
     Indication: CARDIAC DISORDER
     Dosage: 40 MG
     Route: 048
     Dates: start: 20120101
  7. GLIPIZIDE [Concomitant]
     Indication: DIABETES MELLITUS
     Dosage: 10 MG
     Route: 048
     Dates: start: 20100101
  8. LASIX [Concomitant]
     Indication: SWELLING
     Route: 048
  9. METOPROLOL TARTRATE [Concomitant]
     Indication: HYPERTENSION
     Dosage: 50 MG
     Route: 048
     Dates: start: 20120101

REACTIONS (6)
  - PRURITUS [None]
  - FRACTURED COCCYX [None]
  - DIZZINESS [None]
  - RASH [None]
  - FALL [None]
  - WRIST FRACTURE [None]
